FAERS Safety Report 25077092 (Version 1)
Quarter: 2025Q1

REPORT INFORMATION
  Report Type: Report from Study
  Country: CA (occurrence: CA)
  Receive Date: 20250314
  Receipt Date: 20250314
  Transmission Date: 20250408
  Serious: Yes (Other)
  Sender: TAKEDA
  Company Number: CA-TAKEDA-2025TUS022719

PATIENT
  Sex: Female

DRUGS (3)
  1. VEDOLIZUMAB [Suspect]
     Active Substance: VEDOLIZUMAB
     Indication: Colitis ulcerative
  2. SYNTHROID [Concomitant]
     Active Substance: LEVOTHYROXINE SODIUM
  3. PREDNISONE [Concomitant]
     Active Substance: PREDNISONE

REACTIONS (5)
  - Lower respiratory tract infection [Unknown]
  - Illness [Recovering/Resolving]
  - Back pain [Recovering/Resolving]
  - Arthralgia [Recovering/Resolving]
  - Nasopharyngitis [Recovering/Resolving]
